FAERS Safety Report 8935538 (Version 3)
Quarter: 2015Q3

REPORT INFORMATION
  Report Type: Report from Study
  Country: AU (occurrence: AU)
  Receive Date: 20121130
  Receipt Date: 20150908
  Transmission Date: 20151125
  Serious: Yes (Life-Threatening, Hospitalization, Disabling, Other)
  Sender: FDA-Public Use
  Company Number: PHHY2012AU108686

PATIENT
  Age: 48 Year
  Sex: Male

DRUGS (6)
  1. CLOZARIL [Suspect]
     Active Substance: CLOZAPINE
     Indication: SCHIZOPHRENIA
     Dosage: 200 OT, UNK
     Route: 048
     Dates: start: 20120919
  2. ATORVASTATIN [Concomitant]
     Active Substance: ATORVASTATIN
     Indication: PRODUCT USED FOR UNKNOWN INDICATION
     Dosage: 80 MG, QHS (NOCTE)
     Route: 048
     Dates: start: 2010
  3. OMEPRAZOLE. [Concomitant]
     Active Substance: OMEPRAZOLE
     Indication: PRODUCT USED FOR UNKNOWN INDICATION
     Dosage: 20 MG, MANE
     Route: 048
     Dates: start: 2012
  4. CLOZARIL [Suspect]
     Active Substance: CLOZAPINE
     Dosage: 175 MG, (TITRATED WITH MAXIMUM DOSE OF 175 MG)
     Route: 048
     Dates: end: 20121005
  5. RAMIPRIL. [Concomitant]
     Active Substance: RAMIPRIL
     Indication: PRODUCT USED FOR UNKNOWN INDICATION
     Dosage: 1.25 MG, MANE
     Route: 048
     Dates: start: 2012
  6. METOPROLOL [Concomitant]
     Active Substance: METOPROLOL
     Indication: PRODUCT USED FOR UNKNOWN INDICATION
     Dosage: 12.5 MG, BID
     Route: 048
     Dates: start: 2010

REACTIONS (11)
  - Dilatation ventricular [Unknown]
  - Wound infection [Recovered/Resolved with Sequelae]
  - Myocarditis [Unknown]
  - Acute myocardial infarction [Recovered/Resolved with Sequelae]
  - Malaise [Recovered/Resolved with Sequelae]
  - Ejection fraction decreased [Unknown]
  - Purulent pericarditis [Recovered/Resolved with Sequelae]
  - Sepsis [Recovered/Resolved with Sequelae]
  - Pleural effusion [Recovered/Resolved with Sequelae]
  - Ventricular internal diameter abnormal [Unknown]
  - Troponin I increased [Unknown]

NARRATIVE: CASE EVENT DATE: 20120927
